FAERS Safety Report 4369436-1 (Version None)
Quarter: 2004Q2

REPORT INFORMATION
  Report Type: 
  Country: None (occurrence: None)
  Receive Date: 20040527
  Receipt Date: 20040517
  Transmission Date: 20050107
  Serious: Yes (Disabling)
  Sender: FDA-Public Use
  Company Number: HQWYE715105MAY04

PATIENT
  Age: 49 Year
  Sex: Female
  Weight: 81.72 kg

DRUGS (26)
  1. EFFEXOR XR [Suspect]
     Indication: ANXIETY
     Dosage: SEE IMGE
     Route: 048
     Dates: start: 20030501, end: 20030101
  2. EFFEXOR XR [Suspect]
     Indication: DEPRESSION
     Dosage: SEE IMGE
     Route: 048
     Dates: start: 20030501, end: 20030101
  3. EFFEXOR XR [Suspect]
     Indication: ANXIETY
     Dosage: SEE IMGE
     Route: 048
     Dates: start: 20030301, end: 20030501
  4. EFFEXOR XR [Suspect]
     Indication: DEPRESSION
     Dosage: SEE IMGE
     Route: 048
     Dates: start: 20030301, end: 20030501
  5. EFFEXOR XR [Suspect]
     Indication: ANXIETY
     Dosage: SEE IMGE
     Route: 048
     Dates: start: 20030101, end: 20040201
  6. EFFEXOR XR [Suspect]
     Indication: DEPRESSION
     Dosage: SEE IMGE
     Route: 048
     Dates: start: 20030101, end: 20040201
  7. EFFEXOR XR [Suspect]
     Indication: ANXIETY
     Dosage: SEE IMGE
     Route: 048
     Dates: start: 20040201, end: 20040301
  8. EFFEXOR XR [Suspect]
     Indication: DEPRESSION
     Dosage: SEE IMGE
     Route: 048
     Dates: start: 20040201, end: 20040301
  9. EFFEXOR XR [Suspect]
     Indication: ANXIETY
     Dosage: SEE IMGE
     Route: 048
     Dates: start: 20040302, end: 20040308
  10. EFFEXOR XR [Suspect]
     Indication: DEPRESSION
     Dosage: SEE IMGE
     Route: 048
     Dates: start: 20040302, end: 20040308
  11. EFFEXOR XR [Suspect]
     Indication: ANXIETY
     Dosage: SEE IMGE
     Route: 048
     Dates: start: 20040309, end: 20040309
  12. EFFEXOR XR [Suspect]
     Indication: DEPRESSION
     Dosage: SEE IMGE
     Route: 048
     Dates: start: 20040309, end: 20040309
  13. EFFEXOR XR [Suspect]
     Indication: ANXIETY
     Dosage: SEE IMGE
     Route: 048
     Dates: start: 20040310, end: 20040316
  14. EFFEXOR XR [Suspect]
     Indication: DEPRESSION
     Dosage: SEE IMGE
     Route: 048
     Dates: start: 20040310, end: 20040316
  15. EFFEXOR XR [Suspect]
     Indication: ANXIETY
     Dosage: SEE IMGE
     Route: 048
     Dates: start: 20040301, end: 20040401
  16. EFFEXOR XR [Suspect]
     Indication: DEPRESSION
     Dosage: SEE IMGE
     Route: 048
     Dates: start: 20040301, end: 20040401
  17. EFFEXOR XR [Suspect]
     Indication: ANXIETY
     Dosage: SEE IMGE
     Route: 048
     Dates: start: 20040401, end: 20040409
  18. EFFEXOR XR [Suspect]
     Indication: DEPRESSION
     Dosage: SEE IMGE
     Route: 048
     Dates: start: 20040401, end: 20040409
  19. EFFEXOR XR [Suspect]
     Indication: ANXIETY
     Dosage: SEE IMGE
     Route: 048
     Dates: start: 20040410, end: 20040413
  20. EFFEXOR XR [Suspect]
     Indication: DEPRESSION
     Dosage: SEE IMGE
     Route: 048
     Dates: start: 20040410, end: 20040413
  21. EFFEXOR XR [Suspect]
     Indication: ANXIETY
     Dosage: SEE IMGE
     Route: 048
     Dates: start: 20040418, end: 20040421
  22. EFFEXOR XR [Suspect]
     Indication: DEPRESSION
     Dosage: SEE IMGE
     Route: 048
     Dates: start: 20040418, end: 20040421
  23. EFFEXOR [Suspect]
     Dosage: 12.5 MG 2 X 1 DAY, ORAL
     Route: 048
     Dates: start: 20040414, end: 20040417
  24. LESCOL [Concomitant]
  25. TOPROL-XL [Concomitant]
  26. KLONOPIN [Concomitant]

REACTIONS (22)
  - AFFECTIVE DISORDER [None]
  - ALCOHOL USE [None]
  - ANGER [None]
  - ANXIETY [None]
  - CRYING [None]
  - DECREASED ACTIVITY [None]
  - DEPRESSION [None]
  - DISTURBANCE IN ATTENTION [None]
  - DIZZINESS [None]
  - DRUG INEFFECTIVE [None]
  - DRUG WITHDRAWAL SYNDROME [None]
  - FEELING ABNORMAL [None]
  - FEELING GUILTY [None]
  - GASTRIC DISORDER [None]
  - HEADACHE [None]
  - IRRITABILITY [None]
  - MOOD ALTERED [None]
  - NAUSEA [None]
  - NERVOUS SYSTEM DISORDER [None]
  - PANIC REACTION [None]
  - PARAESTHESIA [None]
  - PARENT-CHILD PROBLEM [None]
